FAERS Safety Report 4524953-6 (Version None)
Quarter: 2004Q4

REPORT INFORMATION
  Report Type: 
  Country: None (occurrence: None)
  Receive Date: 20041210
  Receipt Date: 20041123
  Transmission Date: 20050328
  Serious: Yes (Death)
  Sender: FDA-Public Use
  Company Number: 2004AL000583

PATIENT
  Age: 44 Year
  Sex: Male

DRUGS (4)
  1. ALPRAZOLAM [Suspect]
     Dosage: 1 MG; PO
     Route: 048
  2. BISOPROLOL FUMARATE AND HYDROCHLOROTHIAZIDE [Suspect]
     Dosage: PO
     Route: 048
  3. OXYCODONE HCL [Suspect]
     Dosage: 80 MG; PO
     Route: 048
  4. VALSARTAN [Suspect]
     Dosage: 160 MG; PO
     Route: 048

REACTIONS (2)
  - COMPLETED SUICIDE [None]
  - MULTIPLE DRUG OVERDOSE [None]
